FAERS Safety Report 23058649 (Version 1)
Quarter: 2023Q4

REPORT INFORMATION
  Report Type: Spontaneous
  Country: US (occurrence: None)
  Receive Date: 20231011
  Receipt Date: 20231011
  Transmission Date: 20240110
  Serious: Yes (Hospitalization)
  Sender: FDA-Public Use
  Company Number: None

PATIENT
  Sex: Male

DRUGS (1)
  1. OPSUMIT [Suspect]
     Active Substance: MACITENTAN
     Indication: Pulmonary arterial hypertension
     Dosage: FREQUENCY : DAILY;?
     Route: 048
     Dates: start: 202306

REACTIONS (8)
  - CREST syndrome [None]
  - Cardiac failure congestive [None]
  - Headache [None]
  - Arthralgia [None]
  - Pain in extremity [None]
  - Product use issue [None]
  - Insurance issue [None]
  - Fall [None]
